FAERS Safety Report 11951466 (Version 1)
Quarter: 2016Q1

REPORT INFORMATION
  Report Type: Spontaneous
  Country: US (occurrence: US)
  Receive Date: 20160126
  Receipt Date: 20160126
  Transmission Date: 20160526
  Serious: Yes (Other)
  Sender: FDA-Public Use
  Company Number: US-PIRAMAL ENTERPRISES LIMITED-2016-PEL-000625

PATIENT

DRUGS (10)
  1. SEVOFLURANE, USP [Suspect]
     Active Substance: SEVOFLURANE
     Indication: MAINTENANCE OF ANAESTHESIA
     Dosage: 2-4%, 0.52 MAC HOURS
  2. LIDOCAINE. [Concomitant]
     Active Substance: LIDOCAINE
     Indication: INFILTRATION ANAESTHESIA
     Dosage: 0.5 %, UNK, 6-ML MIXTURE WITH BUPIVACAINE 0.125% AND EPINEPHRINE 2.5 ?G/ML
     Route: 065
  3. NITROUS OXIDE. [Concomitant]
     Active Substance: NITROUS OXIDE
     Indication: INDUCTION OF ANAESTHESIA
     Dosage: UNK
  4. BUPIVACAINE [Concomitant]
     Active Substance: BUPIVACAINE
     Indication: INFILTRATION ANAESTHESIA
     Dosage: 0.125 %, UNK, 6-ML MIXTURE WITH LIDOCAINE 0.5% AND EPINEPHRINE 2.5 ?G/ML
     Route: 065
  5. SEVOFLURANE, USP [Suspect]
     Active Substance: SEVOFLURANE
     Indication: INDUCTION OF ANAESTHESIA
     Dosage: UNK
  6. MORPHINE [Concomitant]
     Active Substance: MORPHINE
     Dosage: 2 MG, SINGLE
     Route: 042
  7. ONDANSETRON [Concomitant]
     Active Substance: ONDANSETRON
     Dosage: 4 MG, SINGLE
     Route: 042
  8. MIDAZOLAM [Suspect]
     Active Substance: MIDAZOLAM\MIDAZOLAM HYDROCHLORIDE
     Dosage: 10 MG, SINGLE, 40 MINUTES BEFORE INHALED INDUCTION
     Route: 048
  9. EPINEPHRINE. [Concomitant]
     Active Substance: EPINEPHRINE
     Indication: INFILTRATION ANAESTHESIA
     Dosage: 2.5 ?G/ML, UNK, 6-ML MIXTURE WITH LIDOCAINE 0.5% AND BUPIVACAINE 0.125%
     Route: 065
  10. RINGER LACTATE                     /01126301/ [Concomitant]
     Dosage: 250 ML, SINGLE, INTRA-OPERATIVELY
     Route: 042

REACTIONS (10)
  - Hyperventilation [Recovered/Resolved]
  - Anxiety [Recovered/Resolved]
  - Tremor [Recovered/Resolved]
  - Panic reaction [Recovered/Resolved]
  - Aphasia [Recovered/Resolved]
  - Movement disorder [Recovered/Resolved]
  - Prosopagnosia [Recovered/Resolved]
  - Agnosia [Recovered/Resolved]
  - Crying [Recovered/Resolved]
  - Anaesthetic complication neurological [Recovered/Resolved]
